FAERS Safety Report 9286149 (Version 1)
Quarter: 2013Q2

REPORT INFORMATION
  Report Type: Spontaneous
  Country: US (occurrence: None)
  Receive Date: 20130510
  Receipt Date: 20130510
  Transmission Date: 20140414
  Serious: Yes (Hospitalization)
  Sender: FDA-Public Use
  Company Number: None

PATIENT
  Age: 61 Year
  Sex: Male
  Weight: 112.8 kg

DRUGS (2)
  1. BICALUTAMIDE [Suspect]
     Route: 048
  2. LEUPROLIDE ACETATE [Suspect]
     Dates: start: 20120320

REACTIONS (4)
  - Fatigue [None]
  - Hot flush [None]
  - Depression [None]
  - Emotional disorder [None]
